FAERS Safety Report 15110820 (Version 4)
Quarter: 2019Q1

REPORT INFORMATION
  Report Type: Spontaneous
  Country: US (occurrence: US)
  Receive Date: 20180705
  Receipt Date: 20190311
  Transmission Date: 20190417
  Serious: Yes (Other)
  Sender: FDA-Public Use
  Company Number: US-DSJP-DSU-2016-115196

PATIENT

DRUGS (10)
  1. TRIBENZOR [Suspect]
     Active Substance: AMLODIPINE BESYLATE\HYDROCHLOROTHIAZIDE\OLMESARTAN MEDOXOMIL
     Indication: HYPERTENSION
     Dosage: 40/5/25MG, QD
     Route: 048
     Dates: start: 201212, end: 201412
  2. CLONIDINE HCL [Concomitant]
     Active Substance: CLONIDINE HYDROCHLORIDE
     Indication: HYPERTENSION
     Dosage: 0.1 MG, AS NEEDED
     Dates: start: 2006
  3. DIAZEPAM. [Concomitant]
     Active Substance: DIAZEPAM
     Indication: SEDATIVE THERAPY
     Dosage: 5 MG, AS NEEDED
     Dates: start: 2005
  4. ZOLPIDEM [Concomitant]
     Active Substance: ZOLPIDEM\ZOLPIDEM TARTRATE
     Indication: SLEEP DISORDER
     Dosage: 10 MG, AS NEEDED
     Dates: start: 2007
  5. SIMVASTATIN. [Concomitant]
     Active Substance: SIMVASTATIN
     Indication: BLOOD CHOLESTEROL
     Dosage: 20 MG, QD
     Dates: start: 2009
  6. BENICAR [Suspect]
     Active Substance: OLMESARTAN MEDOXOMIL
     Indication: HYPERTENSION
     Dosage: 40 MG, BID
     Dates: start: 200601, end: 2008
  7. BENICAR [Suspect]
     Active Substance: OLMESARTAN MEDOXOMIL
     Dosage: UNK
     Dates: start: 2012
  8. BENICAR HCT [Suspect]
     Active Substance: HYDROCHLOROTHIAZIDE\OLMESARTAN MEDOXOMIL
  9. OMEPRAZOLE. [Concomitant]
     Active Substance: OMEPRAZOLE
     Indication: GASTROOESOPHAGEAL REFLUX DISEASE
     Dosage: 20 MG, QD
     Dates: start: 2009
  10. HYOSCYAMINE. [Concomitant]
     Active Substance: HYOSCYAMINE
     Indication: ABDOMINAL PAIN UPPER
     Dosage: 0.125 MG, AS NEEDED
     Dates: start: 2006

REACTIONS (17)
  - Peptic ulcer [Unknown]
  - Hiatus hernia [Unknown]
  - Haemorrhoids [Unknown]
  - Irritable bowel syndrome [Recovering/Resolving]
  - Rectal polyp [Unknown]
  - Coeliac disease [Not Recovered/Not Resolved]
  - Gastrooesophageal reflux disease [Not Recovered/Not Resolved]
  - Large intestine polyp [Not Recovered/Not Resolved]
  - Iritis [Recovering/Resolving]
  - Large intestinal stenosis [Not Recovered/Not Resolved]
  - Diverticulitis [Unknown]
  - Acute kidney injury [Unknown]
  - Gastritis haemorrhagic [Not Recovered/Not Resolved]
  - Diverticulum [Unknown]
  - Inflammatory bowel disease [Unknown]
  - Sprue-like enteropathy [Recovered/Resolved]
  - Oedema [Not Recovered/Not Resolved]

NARRATIVE: CASE EVENT DATE: 20050224
